FAERS Safety Report 23332134 (Version 3)
Quarter: 2024Q1

REPORT INFORMATION
  Report Type: Spontaneous
  Country: FR (occurrence: FR)
  Receive Date: 20231222
  Receipt Date: 20240221
  Transmission Date: 20240410
  Serious: Yes (Other)
  Sender: FDA-Public Use
  Company Number: FR-OPELLA-2023OHG019074

PATIENT
  Sex: Female

DRUGS (1)
  1. DULCOLAX STIMULANT LAXATIVE [Suspect]
     Active Substance: BISACODYL
     Indication: Constipation
     Dosage: ILLEGIBLE10 BOXES/MONTH ?DOSAGE FORM: COATED TABLET
     Route: 048
     Dates: start: 202305, end: 202312

REACTIONS (2)
  - Drug abuse [Unknown]
  - No adverse event [Unknown]

NARRATIVE: CASE EVENT DATE: 20230501
